FAERS Safety Report 4680376-0 (Version None)
Quarter: 2005Q2

REPORT INFORMATION
  Report Type: 
  Country: None (occurrence: None)
  Receive Date: 20050601
  Receipt Date: 20050526
  Transmission Date: 20051028
  Serious: Yes (Death)
  Sender: FDA-Public Use
  Company Number: OMPQ-NO-0505S-0738

PATIENT
  Age: 75 Year
  Sex: Male

DRUGS (2)
  1. OMNIPAQUE 140 [Suspect]
     Indication: DRUG USE FOR UNKNOWN INDICATION
     Dosage: SINGLE DOSE, I.V.
     Route: 042
     Dates: start: 20050518, end: 20050518
  2. OMNIPAQUE 140 [Suspect]

REACTIONS (1)
  - COMA [None]
